FAERS Safety Report 9070933 (Version 1)
Quarter: 2013Q1

REPORT INFORMATION
  Report Type: Report from Study
  Country: JP (occurrence: JP)
  Receive Date: 20130129
  Receipt Date: 20130129
  Transmission Date: 20140127
  Serious: Yes (Other)
  Sender: FDA-Public Use
  Company Number: JP-GLAXOSMITHKLINE-B0559127A

PATIENT
  Age: 49 None
  Sex: Male
  Weight: 70 kg

DRUGS (25)
  1. ARRANON [Suspect]
     Indication: T-CELL TYPE ACUTE LEUKAEMIA
     Dosage: 1500MGM2 PER DAY
     Route: 042
     Dates: start: 20081020, end: 20081020
  2. ARRANON [Suspect]
     Indication: T-CELL TYPE ACUTE LEUKAEMIA
     Dosage: 1500MGM2 PER DAY
     Route: 042
     Dates: start: 20081022, end: 20081022
  3. ARRANON [Suspect]
     Indication: T-CELL TYPE ACUTE LEUKAEMIA
     Dosage: 1500MGM2 PER DAY
     Route: 042
     Dates: start: 20081024, end: 20081024
  4. AMBISOME [Suspect]
     Indication: PULMONARY MYCOSIS
     Route: 042
     Dates: start: 20080912, end: 20081029
  5. FILGRASTIM [Concomitant]
     Dates: start: 20080820, end: 20081013
  6. MICAFUNGIN [Concomitant]
     Route: 042
     Dates: start: 20080825, end: 20080907
  7. VORICONAZOLE [Concomitant]
     Route: 065
     Dates: start: 20080907, end: 20080911
  8. CEFTAZIDIME [Concomitant]
     Route: 042
     Dates: start: 20080912, end: 20080922
  9. VANCOMYCIN HYDROCHLORIDE [Concomitant]
     Route: 065
     Dates: start: 20080912, end: 20080920
  10. PAZUFLOXACIN MESILATE [Concomitant]
     Route: 042
     Dates: start: 20080922, end: 20081029
  11. LANSOPRAZOLE [Concomitant]
     Route: 065
     Dates: start: 20080926
  12. LEVOFLOXACIN [Concomitant]
     Route: 065
     Dates: start: 20081002, end: 20081006
  13. ETOPOSIDE [Concomitant]
     Route: 065
     Dates: start: 20081002, end: 20081004
  14. DEXAMETHASONE [Concomitant]
     Route: 065
     Dates: start: 20081002, end: 20081004
  15. CEFEPIME DIHYDROCHLORIDE [Concomitant]
     Route: 042
     Dates: start: 20081006, end: 20081013
  16. MEROPENEM TRIHYDRATE [Concomitant]
     Route: 042
     Dates: start: 20081010, end: 20081024
  17. CYTARABINE [Concomitant]
     Indication: NEOPLASM MALIGNANT
     Dates: start: 20081002, end: 20081004
  18. VEPESID [Concomitant]
     Indication: NEOPLASM MALIGNANT
     Route: 042
     Dates: start: 20081002, end: 20081004
  19. DEXART [Concomitant]
     Indication: NEOPLASM MALIGNANT
     Dates: start: 20081002, end: 20081004
  20. DEXART [Concomitant]
     Indication: NEOPLASM MALIGNANT
     Dates: start: 20081002, end: 20081002
  21. METHOTREXATE [Concomitant]
     Indication: NEOPLASM MALIGNANT
     Dates: start: 20081002, end: 20081002
  22. MEROPEN [Concomitant]
     Indication: PNEUMONIA
     Dates: start: 20081014, end: 20081024
  23. PASIL [Concomitant]
     Indication: PNEUMONIA
     Dates: start: 20081024, end: 20081029
  24. CEFTAZIDIME [Concomitant]
     Dates: start: 20081029, end: 20081111
  25. VFEND [Concomitant]
     Route: 048
     Dates: start: 20081029, end: 20081215

REACTIONS (4)
  - Renal impairment [Recovered/Resolved]
  - Depressed level of consciousness [Recovered/Resolved]
  - Myalgia [Recovered/Resolved]
  - Blood creatine phosphokinase increased [Recovered/Resolved]
